FAERS Safety Report 4766601-6 (Version None)
Quarter: 2005Q3

REPORT INFORMATION
  Report Type: 
  Country: None (occurrence: None)
  Receive Date: 20050912
  Receipt Date: 20050824
  Transmission Date: 20060218
  Serious: Yes (Hospitalization)
  Sender: FDA-Public Use
  Company Number: 2005BI016000

PATIENT
  Age: 53 Year
  Sex: Female
  Weight: 86.1834 kg

DRUGS (10)
  1. AVONEX [Suspect]
     Indication: MULTIPLE SCLEROSIS
     Dosage: 30 UG;QW; IM
     Route: 030
     Dates: start: 20010101, end: 20030101
  2. AVONEX [Suspect]
     Indication: MULTIPLE SCLEROSIS
     Dosage: SEE IMAGE
     Route: 030
     Dates: start: 20030101, end: 20050601
  3. AVONEX [Suspect]
     Indication: MULTIPLE SCLEROSIS
     Dosage: SEE IMAGE
     Route: 030
     Dates: start: 20050822
  4. NEURONTIN [Concomitant]
  5. SKELAXIN [Concomitant]
  6. MACRODANTIN [Concomitant]
  7. CENESTIN [Concomitant]
  8. MISOPROSTOL [Concomitant]
  9. PEPCID [Concomitant]
  10. SUPLEMENTS [Concomitant]

REACTIONS (22)
  - ASTHMA [None]
  - CARDIAC DISORDER [None]
  - CONDITION AGGRAVATED [None]
  - DEPRESSION [None]
  - DIFFICULTY IN WALKING [None]
  - DYSTHYMIC DISORDER [None]
  - HOT FLUSH [None]
  - HYPERTENSION [None]
  - INCONTINENCE [None]
  - INFLUENZA LIKE ILLNESS [None]
  - INSOMNIA [None]
  - INTERVERTEBRAL DISC DEGENERATION [None]
  - INTESTINAL FUNCTIONAL DISORDER [None]
  - MULTIPLE SCLEROSIS [None]
  - MUSCLE RIGIDITY [None]
  - MUSCLE SPASTICITY [None]
  - OSTEOPOROSIS [None]
  - PHOBIA [None]
  - PNEUMONIA ASPIRATION [None]
  - SPONDYLITIS [None]
  - SUICIDE ATTEMPT [None]
  - WEIGHT INCREASED [None]
